FAERS Safety Report 9460424 (Version 1)
Quarter: 2013Q3

REPORT INFORMATION
  Report Type: Spontaneous
  Country: CN (occurrence: CN)
  Receive Date: 20130815
  Receipt Date: 20130815
  Transmission Date: 20140515
  Serious: Yes (Other)
  Sender: FDA-Public Use
  Company Number: CN-BAXTER-2013BAX031665

PATIENT
  Age: 34 Year
  Sex: Female

DRUGS (8)
  1. HOLOXAN [Suspect]
     Indication: BREAST ANGIOSARCOMA
  2. HOLOXAN [Suspect]
     Indication: PULMONARY MASS
  3. UROMITEXAN [Suspect]
     Indication: BREAST ANGIOSARCOMA
  4. UROMITEXAN [Suspect]
     Indication: PULMONARY MASS
  5. ADRIAMYCIN [Suspect]
     Indication: BREAST ANGIOSARCOMA
  6. ADRIAMYCIN [Suspect]
     Indication: PULMONARY MASS
  7. DACARBAZINE [Suspect]
     Indication: BREAST ANGIOSARCOMA
  8. DACARBAZINE [Suspect]
     Indication: PULMONARY MASS

REACTIONS (2)
  - Drug ineffective [Recovered/Resolved]
  - Disease progression [Recovered/Resolved with Sequelae]
